FAERS Safety Report 5693189-8 (Version None)
Quarter: 2008Q2

REPORT INFORMATION
  Report Type: 
  Country: None (occurrence: None)
  Receive Date: 20080403
  Receipt Date: 20080401
  Transmission Date: 20081010
  Serious: Yes (Death, Life-Threatening)
  Sender: FDA-Public Use
  Company Number: FR-BRISTOL-MYERS SQUIBB COMPANY-14132419

PATIENT
  Age: 83 Year
  Sex: Male

DRUGS (7)
  1. COUMADIN [Suspect]
     Dates: start: 20080110, end: 20080119
  2. ARIXTRA [Suspect]
     Route: 058
     Dates: start: 20080110, end: 20080116
  3. NEXIUM [Concomitant]
     Dates: start: 20080114, end: 20080121
  4. MEMANTINE HCL [Concomitant]
     Dates: start: 20080105, end: 20080121
  5. PIPERACILLIN SODIUM AND TAZOBACTAM SODIUM [Concomitant]
     Route: 042
     Dates: start: 20080103, end: 20080112
  6. CIFLOX [Concomitant]
     Route: 042
     Dates: start: 20080103, end: 20080112
  7. TARGOCID [Concomitant]
     Dates: start: 20080103, end: 20080112

REACTIONS (2)
  - DEATH [None]
  - HAEMORRHAGIC DISORDER [None]
